FAERS Safety Report 20697616 (Version 2)
Quarter: 2022Q3

REPORT INFORMATION
  Report Type: Report from Study
  Country: US (occurrence: US)
  Receive Date: 20220411
  Receipt Date: 20220923
  Transmission Date: 20221026
  Serious: No
  Sender: FDA-Public Use
  Company Number: US-BEH-2022144085

PATIENT
  Age: 55 Year
  Sex: Female
  Weight: 112.02 kg

DRUGS (1)
  1. HIZENTRA [Suspect]
     Active Substance: HUMAN IMMUNOGLOBULIN G
     Indication: Primary immunodeficiency syndrome
     Dosage: 25 GRAM, QW
     Route: 058
     Dates: start: 20220126

REACTIONS (6)
  - Urticaria [Recovering/Resolving]
  - Infusion site pruritus [Not Recovered/Not Resolved]
  - Fatigue [Not Recovered/Not Resolved]
  - Peripheral swelling [Unknown]
  - Injection site rash [Recovering/Resolving]
  - Seasonal allergy [Unknown]

NARRATIVE: CASE EVENT DATE: 20220126
